FAERS Safety Report 10229357 (Version 1)
Quarter: 2014Q2

REPORT INFORMATION
  Report Type: Spontaneous
  Country: JP (occurrence: JP)
  Receive Date: 20140611
  Receipt Date: 20140611
  Transmission Date: 20141212
  Serious: Yes (Other)
  Sender: FDA-Public Use
  Company Number: JP-ROCHE-1416310

PATIENT
  Sex: 0

DRUGS (4)
  1. XELODA [Suspect]
     Indication: PRODUCT USED FOR UNKNOWN INDICATION
     Route: 048
  2. XELODA [Suspect]
     Route: 048
  3. HERCEPTIN [Suspect]
     Indication: PRODUCT USED FOR UNKNOWN INDICATION
     Route: 041
  4. CISPLATIN [Concomitant]
     Route: 041

REACTIONS (2)
  - Cardiotoxicity [Unknown]
  - Nephropathy toxic [Unknown]
